FAERS Safety Report 6218654-6 (Version None)
Quarter: 2009Q2

REPORT INFORMATION
  Report Type: 
  Country: None (occurrence: None)
  Receive Date: 20090608
  Receipt Date: 20090528
  Transmission Date: 20091009
  Serious: Yes (Other)
  Sender: FDA-Public Use
  Company Number: GB-JNJFOC-20090503820

PATIENT
  Sex: Male
  Weight: 65 kg

DRUGS (6)
  1. REMICADE [Suspect]
     Indication: RHEUMATOID ARTHRITIS
     Dosage: DOSE REPORTED AS 200
     Route: 042
  2. PREDNISOLONE [Concomitant]
  3. SULFASALAZINE [Concomitant]
  4. OMEPRAZOLE [Concomitant]
  5. MOBIFLEX [Concomitant]
  6. PENICILLAMINE [Concomitant]

REACTIONS (1)
  - NEOPLASM MALIGNANT [None]
